FAERS Safety Report 13580470 (Version 3)
Quarter: 2017Q2

REPORT INFORMATION
  Report Type: Spontaneous
  Country: US (occurrence: US)
  Receive Date: 20170525
  Receipt Date: 20170623
  Transmission Date: 20170830
  Serious: Yes (Other)
  Sender: FDA-Public Use
  Company Number: US-JNJFOC-20170522053

PATIENT
  Sex: Male

DRUGS (1)
  1. RISPERDAL [Suspect]
     Active Substance: RISPERIDONE
     Indication: PSYCHOTIC DISORDER
     Dosage: TAKEN ONLY ONE DOSE
     Route: 048
     Dates: start: 20170521

REACTIONS (3)
  - Pruritus [Unknown]
  - Haemodialysis [Unknown]
  - Drug ineffective [Unknown]
